FAERS Safety Report 5587108-2 (Version None)
Quarter: 2008Q1

REPORT INFORMATION
  Report Type: 
  Country: None (occurrence: None)
  Receive Date: 20080110
  Receipt Date: 20080107
  Transmission Date: 20080703
  Serious: Yes (Other)
  Sender: FDA-Public Use
  Company Number: B0500608A

PATIENT
  Age: 31 Year
  Sex: Female
  Weight: 47 kg

DRUGS (4)
  1. RELENZA [Suspect]
     Indication: INFLUENZA
     Route: 055
     Dates: start: 20071217
  2. CHINESE MEDICINE [Concomitant]
     Indication: INFLUENZA
     Dosage: 9G PER DAY
     Route: 048
     Dates: start: 20071217, end: 20071221
  3. BAZAROIN [Concomitant]
     Indication: INFLUENZA
     Dosage: 30MG PER DAY
     Route: 048
     Dates: start: 20071217, end: 20071221
  4. COCARL [Concomitant]
     Indication: INFLUENZA
     Dosage: 800MG PER DAY
     Route: 048
     Dates: start: 20071217, end: 20071221

REACTIONS (2)
  - VISION BLURRED [None]
  - VISUAL DISTURBANCE [None]
